FAERS Safety Report 9180864 (Version 2)
Quarter: 2013Q2

REPORT INFORMATION
  Report Type: Spontaneous
  Country: US (occurrence: US)
  Receive Date: 20130322
  Receipt Date: 20130502
  Transmission Date: 20140414
  Serious: Yes (Hospitalization, Other)
  Sender: FDA-Public Use
  Company Number: US-BAYER-2013-033578

PATIENT
  Age: 22 Year
  Sex: Female
  Weight: 153.74 kg

DRUGS (3)
  1. MIRENA [Suspect]
     Indication: CONTRACEPTION
     Dosage: 20 MCG/24HR, CONT
     Route: 015
     Dates: start: 20110912
  2. MIRENA [Suspect]
     Indication: MENORRHAGIA
  3. SYNTHROID [Concomitant]
     Indication: HYPOTHYROIDISM
     Dosage: 50 ?G, QD

REACTIONS (5)
  - Haemorrhage in pregnancy [None]
  - Device expulsion [None]
  - Pregnancy with contraceptive device [None]
  - Drug ineffective [None]
  - Blighted ovum [None]
